FAERS Safety Report 5465696-4 (Version None)
Quarter: 2007Q3

REPORT INFORMATION
  Report Type: 
  Country: None (occurrence: None)
  Receive Date: 20070924
  Receipt Date: 20070919
  Transmission Date: 20080115
  Serious: Yes (Death, Other)
  Sender: FDA-Public Use
  Company Number: GB-ASTRAZENECA-2007GB01926

PATIENT
  Age: 62 Year
  Sex: Male

DRUGS (2)
  1. PROPOFOL [Suspect]
     Indication: SEDATION
     Route: 042
  2. REMIFENTANIL [Suspect]
     Indication: SEDATION
     Route: 042

REACTIONS (4)
  - APNOEA [None]
  - BRAIN DAMAGE [None]
  - CARDIAC ARREST [None]
  - SEDATION [None]
